FAERS Safety Report 8834699 (Version 1)
Quarter: 2012Q4

REPORT INFORMATION
  Report Type: 
  Country: JP (occurrence: JP)
  Receive Date: 20121010
  Receipt Date: 20121010
  Transmission Date: 20130627
  Serious: Yes (Death, Other)
  Sender: FDA-Public Use
  Company Number: JP-ROCHE-1096789

PATIENT
  Age: 67 Year
  Sex: Male
  Weight: 68 kg

DRUGS (5)
  1. AVASTIN [Suspect]
     Indication: COLON CANCER METASTATIC
     Route: 041
     Dates: start: 20120423, end: 20120709
  2. ELPLAT [Suspect]
     Indication: COLON CANCER METASTATIC
     Dosage: Dosage is uncertain.
     Route: 041
  3. 5-FU [Suspect]
     Indication: COLON CANCER METASTATIC
     Dosage: Dosage is uncertain.
     Route: 040
  4. 5-FU [Suspect]
     Indication: COLON CANCER METASTATIC
     Dosage: Dosage is uncertain.
     Route: 041
  5. LEVOFOLINATE [Suspect]
     Indication: COLON CANCER METASTATIC
     Dosage: Dosage is uncertain.
     Route: 041

REACTIONS (3)
  - Tumour perforation [Fatal]
  - Peritonitis [Unknown]
  - Colon cancer [Fatal]
